FAERS Safety Report 14163852 (Version 1)
Quarter: 2017Q4

REPORT INFORMATION
  Report Type: Spontaneous
  Country: JP (occurrence: JP)
  Receive Date: 20171106
  Receipt Date: 20171106
  Transmission Date: 20180321
  Serious: Yes (Death)
  Sender: FDA-Public Use
  Company Number: JP-BIOTEST PHARMACEUTICALS CORPORATION-JP-2017ADM000254

PATIENT

DRUGS (1)
  1. HUMAN IMMUNOGLOBULIN [Suspect]
     Active Substance: HUMAN IMMUNOGLOBULIN G
     Indication: HYPOGAMMAGLOBULINAEMIA
     Dosage: 400 MG/KG, ONCE A MONTH

REACTIONS (1)
  - Tubulointerstitial nephritis [Fatal]
